FAERS Safety Report 7471989-1 (Version None)
Quarter: 2011Q2

REPORT INFORMATION
  Report Type: 
  Country: None (occurrence: None)
  Receive Date: 20110511
  Receipt Date: 20100907
  Transmission Date: 20111010
  Serious: No
  Sender: FDA-Public Use
  Company Number: A0880534A

PATIENT
  Age: 59 Year
  Sex: Female

DRUGS (2)
  1. TYKERB [Suspect]
     Indication: BREAST CANCER
     Dosage: 1250MG PER DAY
     Route: 065
  2. HYDROCODONE BITARTRATE [Concomitant]

REACTIONS (2)
  - DIARRHOEA [None]
  - FLATULENCE [None]
